FAERS Safety Report 20430204 (Version 1)
Quarter: 2022Q1

REPORT INFORMATION
  Report Type: Report from Study
  Country: FR (occurrence: FR)
  Receive Date: 20220204
  Receipt Date: 20220204
  Transmission Date: 20220423
  Serious: Yes (Death, Life-Threatening)
  Sender: FDA-Public Use
  Company Number: FR-SERVIER-S20001163

PATIENT

DRUGS (10)
  1. PEGASPARGASE [Suspect]
     Active Substance: PEGASPARGASE
     Indication: Acute lymphocytic leukaemia
     Dosage: 1500 IU, ONE DOSE ON D12
     Route: 042
     Dates: start: 20200126
  2. VINCRISTINE SULFATE [Suspect]
     Active Substance: VINCRISTINE SULFATE
     Indication: Acute lymphocytic leukaemia
     Dosage: 0.9 MG IV D8, D15, D22
     Route: 042
     Dates: start: 20200122, end: 20200129
  3. DAUNORUBICIN [Suspect]
     Active Substance: DAUNORUBICIN
     Indication: Acute lymphocytic leukaemia
     Dosage: 18 MG IV,  D8, D15, D22
     Route: 042
     Dates: start: 20200122, end: 20200129
  4. METHYLPREDNISOLONE [Suspect]
     Active Substance: METHYLPREDNISOLONE
     Indication: Acute lymphocytic leukaemia
     Dosage: 40 MG ON  D1 TO D7, PROPHASE
     Route: 042
     Dates: start: 20200115, end: 20200121
  5. METHYLPREDNISOLONE [Suspect]
     Active Substance: METHYLPREDNISOLONE
     Dosage: 36 MG  ON D8 TO D19
     Route: 042
     Dates: start: 20200122, end: 20200202
  6. METHOTREXATE [Suspect]
     Active Substance: METHOTREXATE
     Indication: Acute lymphocytic leukaemia
     Dosage: 10 MG ON D1, D4, D9, D13
     Route: 037
     Dates: start: 20200121, end: 20200201
  7. CYTARABINE [Suspect]
     Active Substance: CYTARABINE
     Indication: Acute lymphocytic leukaemia
     Dosage: 25 MG, D4, D9, D13, D24 CANCELLED
     Route: 037
     Dates: start: 20200121, end: 20200201
  8. HYDROCORTISONE [Suspect]
     Active Substance: HYDROCORTISONE
     Indication: Acute lymphocytic leukaemia
     Dosage: 12 MG , D4, D9, D13
     Route: 037
     Dates: start: 20200121, end: 20200201
  9. TN UNSPECIFIED [Concomitant]
     Indication: Product used for unknown indication
     Dosage: UNK
     Route: 065
  10. TN UNSPECIFIED [Concomitant]
     Indication: Product used for unknown indication
     Dosage: UNK
     Route: 065

REACTIONS (4)
  - Intestinal ischaemia [Fatal]
  - Pseudomonal sepsis [Fatal]
  - Hyperbilirubinaemia [Not Recovered/Not Resolved]
  - Transaminases increased [Not Recovered/Not Resolved]

NARRATIVE: CASE EVENT DATE: 20200202
